FAERS Safety Report 5998273-7 (Version None)
Quarter: 2008Q4

REPORT INFORMATION
  Report Type: 
  Country: None (occurrence: None)
  Receive Date: 20081213
  Receipt Date: 20080627
  Transmission Date: 20090506
  Serious: No
  Sender: FDA-Public Use
  Company Number: US-AMGEN-KDL290873

PATIENT
  Sex: Female

DRUGS (4)
  1. ENBREL [Suspect]
     Indication: RHEUMATOID ARTHRITIS
     Route: 058
     Dates: start: 20071011
  2. ENBREL [Suspect]
     Indication: MIXED CONNECTIVE TISSUE DISEASE
  3. LEFLUNOMIDE [Concomitant]
     Route: 048
     Dates: start: 20070101
  4. METHOTREXATE [Concomitant]
     Route: 048
     Dates: start: 20070101

REACTIONS (1)
  - CYSTITIS [None]
